FAERS Safety Report 15780974 (Version 1)
Quarter: 2019Q1

REPORT INFORMATION
  Report Type: Spontaneous
  Country: TR (occurrence: TR)
  Receive Date: 20190102
  Receipt Date: 20190102
  Transmission Date: 20190417
  Serious: Yes (Life-Threatening, Other)
  Sender: FDA-Public Use
  Company Number: TR-ALKEM LABORATORIES LIMITED-TR-ALKEM-2018-02080

PATIENT
  Age: 16 Month
  Sex: Female

DRUGS (1)
  1. MYCOPHENOLATE MOFETIL. [Suspect]
     Active Substance: MYCOPHENOLATE MOFETIL
     Indication: ACQUIRED HAEMOPHILIA
     Dosage: UNK
     Route: 065

REACTIONS (1)
  - Drug ineffective [Unknown]
